FAERS Safety Report 23359014 (Version 1)
Quarter: 2024Q1

REPORT INFORMATION
  Report Type: Spontaneous
  Country: NL (occurrence: NL)
  Receive Date: 20240102
  Receipt Date: 20240102
  Transmission Date: 20240410
  Serious: Yes (Hospitalization)
  Sender: FDA-Public Use
  Company Number: NL-PFIZER INC-202101333723

PATIENT
  Age: 33 Year
  Sex: Female

DRUGS (2)
  1. ROPIVACAINE [Suspect]
     Active Substance: ROPIVACAINE
     Indication: Epidural analgesia
     Dosage: 8 MILLILITER (50 CC, ( 8CC ROPIVACAINE 2MG/ML))
     Route: 008
     Dates: start: 20211001, end: 20211003
  2. SUFENTANIL [Suspect]
     Active Substance: SUFENTANIL
     Indication: Epidural analgesia
     Dosage: 8 MILLILITER (BOLUS: 8 ML, (2CC OF SUFENTANIL 5 MCG/ML ))
     Route: 008
     Dates: start: 20211001, end: 20211003

REACTIONS (2)
  - Arrested labour [Recovered/Resolved]
  - Maternal exposure during pregnancy [Unknown]

NARRATIVE: CASE EVENT DATE: 20211001
